FAERS Safety Report 4802641-6 (Version None)
Quarter: 2005Q4

REPORT INFORMATION
  Report Type: 
  Country: None (occurrence: None)
  Receive Date: 20051014
  Receipt Date: 20050722
  Transmission Date: 20060501
  Serious: Yes (Hospitalization, Other)
  Sender: FDA-Public Use
  Company Number: 2005078611

PATIENT
  Age: 79 Year
  Sex: Female
  Weight: 51.7101 kg

DRUGS (11)
  1. NEURONTIN [Suspect]
     Indication: DISLOCATION OF VERTEBRA
     Dosage: SEE IMAGE, ORAL
     Route: 048
     Dates: start: 20040908, end: 20050501
  2. NEURONTIN [Suspect]
     Indication: NERVE INJURY
     Dosage: SEE IMAGE, ORAL
     Route: 048
     Dates: start: 20040908, end: 20050501
  3. NEURONTIN [Suspect]
     Indication: NEUROPATHY
     Dosage: SEE IMAGE, ORAL
     Route: 048
     Dates: start: 20040908, end: 20050501
  4. NEURONTIN [Suspect]
     Indication: OSTEOPOROSIS
     Dosage: SEE IMAGE, ORAL
     Route: 048
     Dates: start: 20040908, end: 20050501
  5. TOPROL(METOPROLOL) [Concomitant]
  6. ASPIRIN [Concomitant]
  7. PLAVIX [Concomitant]
  8. ZYRTEC [Concomitant]
  9. MAGNESIUM(MAGNESIUM) [Concomitant]
  10. POTASSIUM(POTASSIUM) [Concomitant]
  11. ZOCOR [Concomitant]

REACTIONS (8)
  - BLOOD CHOLESTEROL INCREASED [None]
  - BLOOD MAGNESIUM INCREASED [None]
  - CHEST PAIN [None]
  - CONSTIPATION [None]
  - DIZZINESS [None]
  - DRUG INEFFECTIVE [None]
  - LOW DENSITY LIPOPROTEIN INCREASED [None]
  - VISION BLURRED [None]
